FAERS Safety Report 6420390-8 (Version None)
Quarter: 2009Q4

REPORT INFORMATION
  Report Type: 
  Country: None (occurrence: None)
  Receive Date: 20091029
  Receipt Date: 20091019
  Transmission Date: 20100525
  Serious: Yes (Hospitalization)
  Sender: FDA-Public Use
  Company Number: JP-ELI_LILLY_AND_COMPANY-JP200910005304

PATIENT
  Age: 32 Year
  Sex: Female

DRUGS (5)
  1. ZYPREXA [Suspect]
     Indication: SCHIZOPHRENIA
     Route: 048
     Dates: start: 20090430, end: 20090919
  2. PHENOBARBITAL TAB [Concomitant]
     Dosage: 60 MG, DAILY (1/D)
     Route: 048
     Dates: start: 20090430
  3. ROHYPNOL [Concomitant]
     Dosage: 3 MG, DAILY (1/D)
     Route: 048
     Dates: start: 20090430
  4. PURSENNID [Concomitant]
     Route: 048
     Dates: start: 20090430
  5. MAGLAX [Concomitant]
     Route: 048
     Dates: start: 20090430

REACTIONS (1)
  - PANCYTOPENIA [None]
